FAERS Safety Report 13619708 (Version 1)
Quarter: 2017Q2

REPORT INFORMATION
  Report Type: Report from Study
  Country: CA (occurrence: CA)
  Receive Date: 20170606
  Receipt Date: 20170606
  Transmission Date: 20170830
  Serious: Yes (Other)
  Sender: FDA-Public Use
  Company Number: CA-HLSUS-2017-CA-000394

PATIENT
  Sex: Male

DRUGS (10)
  1. EPIVAL [Concomitant]
     Active Substance: DIVALPROEX SODIUM
     Dosage: 500MG MORNING TIME AND 750MG BED TIME
  2. ONLAZAPINE [Concomitant]
     Dosage: 15 MG BED TIME AND 2.5MG THREE TIMES A DAY AS NEEDED
  3. GLYCERIN SUPPOSITORY [Concomitant]
     Active Substance: GLYCERIN
  4. SENOKOT [Concomitant]
     Active Substance: SENNOSIDES
     Dosage: 10MG TWICE DAILY AS NEEDED
  5. PROPRANOLOL [Concomitant]
     Active Substance: PROPRANOLOL HYDROCHLORIDE
     Dosage: 10 MG MORNING TIME
  6. BISCADOYL [Concomitant]
  7. CLOZARIL [Suspect]
     Active Substance: CLOZAPINE
     Dosage: 25 MG BED TIME
     Route: 048
     Dates: start: 20170329, end: 20170412
  8. ATROPINE. [Concomitant]
     Active Substance: ATROPINE
     Dosage: 2 DROPS THREE TIMES A DAY
  9. LACTULOSE. [Concomitant]
     Active Substance: LACTULOSE
     Dosage: 15-30MG TWICE A DAY AS NEEDED
  10. BACLOFEN. [Concomitant]
     Active Substance: BACLOFEN
     Dosage: 5 MG TWICE DAILY

REACTIONS (2)
  - Sedation [Recovered/Resolved]
  - Craniocerebral injury [Unknown]
